FAERS Safety Report 20918377 (Version 1)
Quarter: 2022Q2

REPORT INFORMATION
  Report Type: Spontaneous
  Country: US (occurrence: None)
  Receive Date: 20220603
  Receipt Date: 20220603
  Transmission Date: 20220721
  Serious: Yes (unspecified)
  Sender: FDA-Public Use
  Company Number: None

PATIENT
  Sex: Male

DRUGS (1)
  1. HUMIRA [Suspect]
     Active Substance: ADALIMUMAB
     Indication: Crohn^s disease
     Dosage: FREQUENCY : EVERY OTHER WEEK;?
     Route: 058
     Dates: start: 202108

REACTIONS (7)
  - Drug ineffective [None]
  - Crohn^s disease [None]
  - Hypoaesthesia [None]
  - Hypoaesthesia [None]
  - Chest discomfort [None]
  - Arthralgia [None]
  - Cerebrovascular disorder [None]
